FAERS Safety Report 15611072 (Version 1)
Quarter: 2018Q4

REPORT INFORMATION
  Report Type: Spontaneous
  Country: US (occurrence: US)
  Receive Date: 20181113
  Receipt Date: 20181113
  Transmission Date: 20190205
  Serious: No
  Sender: FDA-Public Use
  Company Number: US-ROCHE-2027721

PATIENT

DRUGS (4)
  1. LUCENTIS [Suspect]
     Active Substance: RANIBIZUMAB
     Indication: DIABETIC RETINAL OEDEMA
     Route: 065
  2. LIDOCAINE. [Concomitant]
     Active Substance: LIDOCAINE
  3. BETADINE [Concomitant]
     Active Substance: POVIDONE-IODINE
  4. ZYMAR [Concomitant]
     Active Substance: GATIFLOXACIN

REACTIONS (3)
  - Pain [Unknown]
  - Swelling [Unknown]
  - Crying [Unknown]
